FAERS Safety Report 6521560-0 (Version None)
Quarter: 2009Q4

REPORT INFORMATION
  Report Type: 
  Country: None (occurrence: None)
  Receive Date: 20091214
  Receipt Date: 20090716
  Transmission Date: 20100525
  Serious: Yes (Other)
  Sender: FDA-Public Use
  Company Number: 644624

PATIENT
  Age: 48 Year
  Sex: Male
  Weight: 54.4 kg

DRUGS (8)
  1. PEGASYS [Suspect]
     Indication: HEPATITIS C
     Dates: start: 20060101
  2. RIBAVIRIN [Suspect]
     Indication: HEPATITIS C
     Dates: start: 20060101
  3. RIBASPHERE [Suspect]
     Indication: HEPATITIS C
     Dosage: 1000 MG DAILY
     Dates: end: 20090614
  4. OXYCONTIN [Concomitant]
  5. METHADONE HCL [Concomitant]
  6. SOMA (*AMPICILLIN/*AMPICILLIN SODIUM/*CAFFEINE/*CARISOPRODOL/*CHLORZOX [Concomitant]
  7. XANAX [Concomitant]
  8. AEROBID INHALER (FLUNISOLIDE) [Concomitant]

REACTIONS (25)
  - APHTHOUS STOMATITIS [None]
  - ARTHRALGIA [None]
  - BACK PAIN [None]
  - BLOOD GLUCOSE INCREASED [None]
  - CANDIDIASIS [None]
  - CONJUNCTIVITIS INFECTIVE [None]
  - DECREASED APPETITE [None]
  - DIARRHOEA [None]
  - DYSPHONIA [None]
  - DYSPNOEA [None]
  - EMPHYSEMA [None]
  - HOMICIDAL IDEATION [None]
  - HYPERHIDROSIS [None]
  - MUSCULOSKELETAL PAIN [None]
  - NAUSEA [None]
  - PALPITATIONS [None]
  - PRURITUS [None]
  - PYREXIA [None]
  - RASH PAPULAR [None]
  - SUICIDAL IDEATION [None]
  - SWOLLEN TONGUE [None]
  - THIRST [None]
  - TONGUE DISORDER [None]
  - VOMITING [None]
  - WEIGHT DECREASED [None]
